FAERS Safety Report 5620026-X (Version None)
Quarter: 2008Q1

REPORT INFORMATION
  Report Type: 
  Country: None (occurrence: None)
  Receive Date: 20080208
  Receipt Date: 20080131
  Transmission Date: 20080703
  Serious: Yes (Hospitalization, Other)
  Sender: FDA-Public Use
  Company Number: US-ELI_LILLY_AND_COMPANY-US200802000114

PATIENT
  Age: 71 Year
  Sex: Female

DRUGS (2)
  1. EVISTA [Suspect]
     Indication: OSTEOPOROSIS
     Dosage: 60 MG, DAILY (1/D)
  2. ASPIRIN [Concomitant]
     Indication: PROPHYLAXIS
     Dosage: UNK UNK, DAILY (1/D)

REACTIONS (2)
  - BREAST LUMP REMOVAL [None]
  - HIP ARTHROPLASTY [None]
